FAERS Safety Report 9006746 (Version 1)
Quarter: 2013Q1

REPORT INFORMATION
  Report Type: Spontaneous
  Country: FR (occurrence: FR)
  Receive Date: 20130110
  Receipt Date: 20130110
  Transmission Date: 20140127
  Serious: Yes (Hospitalization)
  Sender: FDA-Public Use
  Company Number: FR-ROCHE-1176310

PATIENT
  Age: 57 Year
  Sex: Male

DRUGS (10)
  1. VALIUM [Suspect]
     Indication: CONFUSIONAL STATE
     Route: 048
     Dates: start: 20120515, end: 20120528
  2. BACLOFENE [Suspect]
     Indication: CONFUSIONAL STATE
     Route: 048
     Dates: start: 20120522, end: 20120528
  3. LASILIX [Suspect]
     Indication: CONFUSIONAL STATE
     Route: 048
     Dates: start: 20120515, end: 20120528
  4. VIALEBEX [Concomitant]
     Route: 065
     Dates: start: 20120602
  5. SOLUPRED (FRANCE) [Concomitant]
     Route: 065
     Dates: start: 20120602
  6. ALDACTONE [Concomitant]
     Route: 065
  7. AVLOCARDYL L.P. [Concomitant]
     Route: 065
  8. INEXIUM [Concomitant]
     Route: 065
  9. LISINOPRIL [Concomitant]
     Route: 065
     Dates: end: 20120530
  10. DUPHALAC [Concomitant]
     Dosage: DAILY DOSE: 2 SACHET
     Route: 065

REACTIONS (9)
  - Hepatic encephalopathy [Recovered/Resolved]
  - Fall [None]
  - Back pain [None]
  - Hypovolaemia [None]
  - Dehydration [None]
  - Renal failure [None]
  - Hepatic failure [None]
  - Hyponatraemia [None]
  - Hyperammonaemia [None]
